FAERS Safety Report 12226158 (Version 2)
Quarter: 2016Q2

REPORT INFORMATION
  Report Type: Report from Study
  Country: PK (occurrence: PK)
  Receive Date: 20160331
  Receipt Date: 20160404
  Transmission Date: 20160815
  Serious: Yes (Death, Other)
  Sender: FDA-Public Use
  Company Number: PHHY2016PK042498

PATIENT
  Age: 84 Year
  Sex: Male

DRUGS (2)
  1. DIOVAN [Suspect]
     Active Substance: VALSARTAN
     Indication: HYPERTENSION
     Dosage: 80 MG, BID
     Route: 048
     Dates: start: 20100403
  2. DIOVAN [Suspect]
     Active Substance: VALSARTAN
     Dosage: 1 DF (80 MG), QD (1+0+0)
     Route: 065

REACTIONS (3)
  - Cardio-respiratory arrest [Fatal]
  - Generalised oedema [Unknown]
  - Vomiting [Fatal]

NARRATIVE: CASE EVENT DATE: 20160203
